FAERS Safety Report 6721283-9 (Version None)
Quarter: 2010Q2

REPORT INFORMATION
  Report Type: 
  Country: None (occurrence: None)
  Receive Date: 20100510
  Receipt Date: 20100506
  Transmission Date: 20101027
  Serious: Yes (Other)
  Sender: FDA-Public Use
  Company Number: 2010SP013300

PATIENT
  Age: 69 Year
  Sex: Female
  Weight: 33 kg

DRUGS (6)
  1. REBETOL [Suspect]
     Indication: HEPATITIS C
     Dosage: 600 MG; QD; PO
     Route: 048
     Dates: start: 20100120, end: 20100206
  2. INTERFERON [Suspect]
     Indication: HEPATITIS C
     Dosage: 3 MIU; BID; INDRP, 6 MIU; QD; INDRP
     Route: 041
     Dates: start: 20100120, end: 20100204
  3. INTERFERON [Suspect]
     Indication: HEPATITIS C
     Dosage: 3 MIU; BID; INDRP, 6 MIU; QD; INDRP
     Route: 041
     Dates: start: 20100205, end: 20100206
  4. VOLTAREN [Concomitant]
  5. TEPRENONE [Concomitant]
  6. RANITAC [Concomitant]

REACTIONS (4)
  - BLOOD LACTATE DEHYDROGENASE INCREASED [None]
  - BLOOD PRESSURE INCREASED [None]
  - HAEMOLYTIC ANAEMIA [None]
  - RENAL IMPAIRMENT [None]
